FAERS Safety Report 26158108 (Version 1)
Quarter: 2025Q4

REPORT INFORMATION
  Report Type: Spontaneous
  Country: CN (occurrence: CN)
  Receive Date: 20251215
  Receipt Date: 20251215
  Transmission Date: 20260118
  Serious: Yes (Other)
  Sender: Kenvue
  Company Number: CN-KENVUE-20251204624

PATIENT
  Weight: 65 kg

DRUGS (1)
  1. CHILDRENS MOTRIN [Suspect]
     Active Substance: IBUPROFEN
     Indication: Antipyresis
     Dosage: 15 MILLILITER, SINGLE
     Route: 061

REACTIONS (3)
  - Off label use [Unknown]
  - Eye pruritus [Recovering/Resolving]
  - Eyelid oedema [Recovering/Resolving]
